FAERS Safety Report 8084643-2 (Version None)
Quarter: 2012Q1

REPORT INFORMATION
  Report Type: 
  Country: None (occurrence: None)
  Receive Date: 20120128
  Receipt Date: 20110329
  Transmission Date: 20120608
  Serious: No
  Sender: FDA-Public Use
  Company Number: US-ABBOTT-11P-163-0715400-00

PATIENT
  Sex: Male
  Weight: 99.88 kg

DRUGS (4)
  1. HUMIRA [Suspect]
     Indication: CROHN'S DISEASE
     Dosage: FOUR HUMIRA PENS 40 MG EACH
     Dates: start: 20110301
  2. MULTI-VITAMIN [Concomitant]
     Indication: VITAMIN SUPPLEMENTATION
  3. ASACOL [Concomitant]
     Indication: CROHN'S DISEASE
  4. HUMIRA [Suspect]
     Dosage: TWO HUMIRA PENS 40 MG EACH
     Dates: start: 20110321

REACTIONS (7)
  - TREMOR [None]
  - ASTHENIA [None]
  - MOBILITY DECREASED [None]
  - CHILLS [None]
  - ARTHRALGIA [None]
  - MYALGIA [None]
  - HYPERHIDROSIS [None]
